FAERS Safety Report 16430556 (Version 2)
Quarter: 2019Q3

REPORT INFORMATION
  Report Type: Spontaneous
  Country: US (occurrence: US)
  Receive Date: 20190614
  Receipt Date: 20190718
  Transmission Date: 20191004
  Serious: Yes (Other)
  Sender: FDA-Public Use
  Company Number: US-SA-2019SA162632

PATIENT
  Age: 43 Year
  Sex: Female
  Weight: 92.5 kg

DRUGS (2)
  1. AUBAGIO [Suspect]
     Active Substance: TERIFLUNOMIDE
     Dosage: 14 MG, QD
  2. AUBAGIO [Suspect]
     Active Substance: TERIFLUNOMIDE
     Indication: MULTIPLE SCLEROSIS
     Dosage: 1 DF, QD
     Dates: start: 20190528

REACTIONS (5)
  - Diarrhoea [Unknown]
  - Blindness [Recovered/Resolved]
  - Depressed mood [Unknown]
  - Nausea [Unknown]
  - Multiple sclerosis relapse [Unknown]
